FAERS Safety Report 14780462 (Version 2)
Quarter: 2018Q3

REPORT INFORMATION
  Report Type: Spontaneous
  Country: US (occurrence: US)
  Receive Date: 20180419
  Receipt Date: 20180809
  Transmission Date: 20181010
  Serious: Yes (Hospitalization)
  Sender: FDA-Public Use
  Company Number: US-ELI_LILLY_AND_COMPANY-US201803004194

PATIENT
  Age: 74 Year
  Sex: Female

DRUGS (3)
  1. ADCIRCA [Suspect]
     Active Substance: TADALAFIL
     Dosage: 2 DF, DAILY
     Route: 048
     Dates: start: 201802
  2. ADCIRCA [Suspect]
     Active Substance: TADALAFIL
     Dosage: 1 DF, DAILY
     Route: 048
  3. ADCIRCA [Suspect]
     Active Substance: TADALAFIL
     Indication: PULMONARY HYPERTENSION
     Dosage: 1 DF, DAILY
     Route: 048

REACTIONS (8)
  - Bowel movement irregularity [Unknown]
  - Anal incontinence [Unknown]
  - Pneumonia [Unknown]
  - Vomiting [Unknown]
  - Gastrointestinal disorder [Unknown]
  - Thrombosis [Unknown]
  - Urinary tract infection [Unknown]
  - Hypotension [Unknown]

NARRATIVE: CASE EVENT DATE: 20180301
